FAERS Safety Report 15093133 (Version 1)
Quarter: 2018Q2

REPORT INFORMATION
  Report Type: Spontaneous
  Country: HR (occurrence: HR)
  Receive Date: 20180629
  Receipt Date: 20180629
  Transmission Date: 20180711
  Serious: Yes (Death, Hospitalization)
  Sender: FDA-Public Use
  Company Number: HR-MYLANLABS-MK-6035231

PATIENT
  Age: 44 Year
  Sex: Male
  Weight: 75 kg

DRUGS (17)
  1. PAROXETINE. [Interacting]
     Active Substance: PAROXETINE
     Indication: SCHIZOPHRENIA
     Dosage: 20 MG,QD
     Route: 048
  2. DIAZEPAM. [Concomitant]
     Active Substance: DIAZEPAM
     Indication: INSOMNIA
  3. ALPRAZOLAM. [Concomitant]
     Active Substance: ALPRAZOLAM
     Indication: MENTAL DISORDER
     Dosage: 6 MG, QD
     Route: 048
  4. ALPRAZOLAM. [Concomitant]
     Active Substance: ALPRAZOLAM
     Indication: MENTAL DISORDER
  5. BIPERIDEN [Concomitant]
     Active Substance: BIPERIDEN
     Indication: MENTAL DISORDER
     Dosage: 6 MG, QD
     Route: 048
  6. FLUPHENAZINE [Suspect]
     Active Substance: FLUPHENAZINE
     Dosage: 1 DF, UNK
  7. ALPRAZOLAM. [Concomitant]
     Active Substance: ALPRAZOLAM
     Indication: ANXIETY
  8. BROMAZEPAM [Concomitant]
     Active Substance: BROMAZEPAM
     Indication: MENTAL DISORDER
     Dosage: 36 MG, QD
     Route: 048
  9. FLUPHENAZINE [Suspect]
     Active Substance: FLUPHENAZINE
     Indication: SCHIZOPHRENIA
     Dosage: 25 MG,BIMONTHLY
     Route: 030
  10. PAROXETINE. [Interacting]
     Active Substance: PAROXETINE
     Indication: DEPRESSION
  11. BROMAZEPAM [Concomitant]
     Active Substance: BROMAZEPAM
     Indication: ANXIETY
  12. BROMAZEPAM [Concomitant]
     Active Substance: BROMAZEPAM
     Indication: SCHIZOPHRENIA
  13. DIAZEPAM. [Concomitant]
     Active Substance: DIAZEPAM
     Indication: SCHIZOPHRENIA
  14. DIAZEPAM. [Concomitant]
     Active Substance: DIAZEPAM
     Indication: MENTAL DISORDER
     Dosage: 30 MG, QD,DAILY DOSE: 30 MG
     Route: 048
  15. FLUPHENAZINE [Suspect]
     Active Substance: FLUPHENAZINE
     Dosage: 40 MG,QD
     Route: 048
  16. HALOPERIDOL. [Interacting]
     Active Substance: HALOPERIDOL
     Indication: MENTAL DISORDER
     Dosage: 12 MG,QD
     Route: 048
  17. OLANZAPINE. [Interacting]
     Active Substance: OLANZAPINE
     Indication: SCHIZOPHRENIA
     Dosage: 30 MG,QD
     Route: 048

REACTIONS (23)
  - Pancreatitis acute [Fatal]
  - Ketonuria [Fatal]
  - Hypotension [Fatal]
  - Coma [Unknown]
  - Nausea [Unknown]
  - Hyponatraemia [Fatal]
  - Inappropriate antidiuretic hormone secretion [Fatal]
  - Drug interaction [Fatal]
  - Abdominal pain [Unknown]
  - Loss of consciousness [Fatal]
  - Bradypnoea [Fatal]
  - Hypoglycaemia [Fatal]
  - Amylase increased [Unknown]
  - Fatigue [Unknown]
  - Hyperglycaemia [Fatal]
  - Pancreatitis haemorrhagic [Fatal]
  - Brain oedema [Fatal]
  - Papilloedema [Unknown]
  - Disorientation [Unknown]
  - Hypopnoea [Unknown]
  - Vertigo [Unknown]
  - Cardiac arrest [Fatal]
  - Endotracheal intubation [Fatal]
